FAERS Safety Report 9723215 (Version 2)
Quarter: 2013Q4

REPORT INFORMATION
  Report Type: Spontaneous
  Country: US (occurrence: US)
  Receive Date: 20131202
  Receipt Date: 20131202
  Transmission Date: 20140711
  Serious: Yes (Other)
  Sender: FDA-Public Use
  Company Number: US-GILEAD-2008-0016323

PATIENT
  Sex: Male
  Weight: 56.25 kg

DRUGS (5)
  1. TRUVADA [Suspect]
     Indication: HIV INFECTION
     Dates: start: 20061003, end: 20061010
  2. KALETRA [Concomitant]
     Indication: HIV INFECTION
  3. HYDRALAZINE [Concomitant]
  4. ATENOLOL [Concomitant]
  5. CHLORTHALIDONE [Concomitant]

REACTIONS (1)
  - Blood creatinine increased [Recovering/Resolving]
